FAERS Safety Report 16747398 (Version 1)
Quarter: 2019Q3

REPORT INFORMATION
  Report Type: Report from Study
  Country: RO (occurrence: RO)
  Receive Date: 20190827
  Receipt Date: 20190827
  Transmission Date: 20191005
  Serious: Yes (Hospitalization)
  Sender: FDA-Public Use
  Company Number: RO-AMGEN-ROUNI2019131203

PATIENT
  Age: 70 Year
  Sex: Female
  Weight: 84 kg

DRUGS (16)
  1. DORETA [Concomitant]
     Active Substance: ACETAMINOPHEN\TRAMADOL HYDROCHLORIDE
     Dosage: 1 UNK
     Dates: start: 2015
  2. ACYCLOVIR [ACICLOVIR] [Concomitant]
     Active Substance: ACYCLOVIR
     Dosage: 400 MILLIGRAM
     Dates: start: 20181005
  3. METFORMIN [Concomitant]
     Active Substance: METFORMIN HYDROCHLORIDE
     Dosage: 1000 MILLIGRAM
     Dates: start: 20181129
  4. NEBIVOLOL. [Concomitant]
     Active Substance: NEBIVOLOL
     Dosage: 5 MILLIGRAM
     Dates: start: 20180913
  5. DIUREX [FUROSEMIDE;SPIRONOLACTONE] [Concomitant]
     Dosage: 70 MILLIGRAM
     Dates: start: 20190405
  6. ATORVASTATIN [Concomitant]
     Active Substance: ATORVASTATIN
     Dosage: 10 MILLIGRAM
     Dates: start: 20180913
  7. CARFILZOMIB [Suspect]
     Active Substance: CARFILZOMIB
     Indication: PLASMA CELL MYELOMA
     Dosage: 105 MILLIGRAM
     Route: 042
     Dates: start: 20181003
  8. GABAPENTIN. [Concomitant]
     Active Substance: GABAPENTIN
     Dosage: 400 MILLIGRAM
     Dates: start: 201511
  9. AMLESSA [Concomitant]
     Active Substance: AMLODIPINE BESYLATE\PERINDOPRIL ERBUMINE
     Dosage: 1 UNK
     Dates: start: 20190405
  10. ASPENTER [Concomitant]
     Active Substance: ASPIRIN
     Dosage: 75 MILLIGRAM
     Dates: start: 20180913
  11. ALLOPURINOL. [Concomitant]
     Active Substance: ALLOPURINOL
     Dosage: 300 MILLIGRAM
     Dates: start: 20181005
  12. DEXAMETHASONE. [Suspect]
     Active Substance: DEXAMETHASONE
     Indication: PLASMA CELL MYELOMA
     Dosage: 20 MILLIGRAM
     Route: 065
     Dates: start: 20181003
  13. GLURENORM [Concomitant]
     Active Substance: GLIQUIDONE
     Dosage: 15 MILLIGRAM
     Dates: start: 20181205
  14. TRIMETAZIDINE [Concomitant]
     Active Substance: TRIMETAZIDINE
     Dosage: 35 MILLIGRAM
     Dates: start: 20190405
  15. TAGREMIN [Concomitant]
     Active Substance: SULFAMETHOXAZOLE\TRIMETHOPRIM
     Dosage: 2 UNK
     Dates: start: 20190605, end: 20190610
  16. INSULIN [Concomitant]
     Active Substance: INSULIN NOS
     Dosage: 16 INTERNATIONAL UNIT
     Dates: start: 20190727, end: 20190727

REACTIONS (1)
  - Escherichia urinary tract infection [Recovered/Resolved]

NARRATIVE: CASE EVENT DATE: 20190812
